FAERS Safety Report 7884493-3 (Version None)
Quarter: 2011Q4

REPORT INFORMATION
  Report Type: 
  Country: None (occurrence: None)
  Receive Date: 20111102
  Receipt Date: 20111021
  Transmission Date: 20120403
  Serious: Yes (Hospitalization)
  Sender: FDA-Public Use
  Company Number: CA-JNJFOC-20111011204

PATIENT
  Sex: Female
  Weight: 46 kg

DRUGS (10)
  1. REMICADE [Suspect]
     Indication: PSORIASIS
     Route: 042
     Dates: start: 20110304
  2. VENLAFAXINE [Concomitant]
     Dosage: VENLAFAXINE ^ER^ 150 MG QD IN AM;   AND VENLAFAXINE 37.5 MG QD
  3. REMICADE [Suspect]
     Indication: ARTHRITIS
     Route: 042
     Dates: start: 20110304
  4. LORAZEPAM [Concomitant]
  5. NEXIUM [Concomitant]
  6. D-TAB [Concomitant]
  7. CALCIUM [Concomitant]
  8. NOVO-GESIC [Concomitant]
  9. RISEDRONATE SODIUM [Concomitant]
  10. IRON [Concomitant]

REACTIONS (3)
  - RADIUS FRACTURE [None]
  - ULNA FRACTURE [None]
  - ROAD TRAFFIC ACCIDENT [None]
